FAERS Safety Report 10293279 (Version 3)
Quarter: 2014Q4

REPORT INFORMATION
  Report Type: Spontaneous
  Country: US (occurrence: US)
  Receive Date: 20140710
  Receipt Date: 20141003
  Transmission Date: 20150528
  Serious: Yes (Hospitalization)
  Sender: FDA-Public Use
  Company Number: US-GLAXOSMITHKLINE-A0874665A

PATIENT
  Age: 63 Year
  Sex: Female

DRUGS (15)
  1. STEROIDS [Suspect]
     Active Substance: UNSPECIFIED INGREDIENT
     Indication: HAEMOPHILUS INFECTION
     Route: 042
  2. URSODIOL. [Concomitant]
     Active Substance: URSODIOL
  3. KLONOPIN [Concomitant]
     Active Substance: CLONAZEPAM
  4. PREDNISONE. [Suspect]
     Active Substance: PREDNISONE
     Indication: PRODUCT USED FOR UNKNOWN INDICATION
     Route: 065
  5. SYNTHROID [Concomitant]
     Active Substance: LEVOTHYROXINE SODIUM
  6. ECOTRIN [Concomitant]
     Active Substance: ASPIRIN
  7. CLONIDINE. [Concomitant]
     Active Substance: CLONIDINE
  8. XOPENEX [Concomitant]
     Active Substance: LEVALBUTEROL HYDROCHLORIDE
  9. SOLU-MEDROL [Suspect]
     Active Substance: METHYLPREDNISOLONE SODIUM SUCCINATE
     Indication: PRODUCT USED FOR UNKNOWN INDICATION
     Route: 065
  10. XANAX [Concomitant]
     Active Substance: ALPRAZOLAM
  11. ZITHROMAX [Concomitant]
     Active Substance: AZITHROMYCIN DIHYDRATE
  12. ADVAIR HFA [Suspect]
     Active Substance: FLUTICASONE PROPIONATE\SALMETEROL XINAFOATE
     Indication: CHRONIC OBSTRUCTIVE PULMONARY DISEASE
     Dosage: 1PUFF TWICE PER DAY
     Route: 055
     Dates: start: 2001
  13. PROBIOTICS [Concomitant]
     Active Substance: PROBIOTICS NOS
  14. CHEMOTHERAPY [Suspect]
     Active Substance: UNSPECIFIED INGREDIENT
     Indication: COLON CANCER
     Route: 065
     Dates: start: 2005
  15. SPIRIVA [Concomitant]
     Active Substance: TIOTROPIUM BROMIDE MONOHYDRATE

REACTIONS (19)
  - Biliary cirrhosis [Recovering/Resolving]
  - Dyspnoea [Recovering/Resolving]
  - Asthenia [Recovering/Resolving]
  - Device occlusion [Unknown]
  - Investigation [Unknown]
  - Central venous catheter removal [Unknown]
  - Haemophilus infection [Recovering/Resolving]
  - Respiratory disorder [Recovering/Resolving]
  - Drug ineffective [Recovering/Resolving]
  - Ill-defined disorder [Unknown]
  - Colon cancer [Unknown]
  - Stent placement [Unknown]
  - Angioplasty [Recovering/Resolving]
  - Superior vena cava syndrome [Recovering/Resolving]
  - Chronic obstructive pulmonary disease [Recovering/Resolving]
  - Dyspnoea exertional [Recovering/Resolving]
  - Adverse event [Unknown]
  - Gastroenteritis norovirus [Unknown]
  - Colectomy [Unknown]

NARRATIVE: CASE EVENT DATE: 2005
